FAERS Safety Report 9912147 (Version 2)
Quarter: 2014Q2

REPORT INFORMATION
  Report Type: Spontaneous
  Country: IT (occurrence: IT)
  Receive Date: 20140220
  Receipt Date: 20140407
  Transmission Date: 20141212
  Serious: Yes (Hospitalization)
  Sender: FDA-Public Use
  Company Number: IT-BRISTOL-MYERS SQUIBB COMPANY-20153581

PATIENT
  Age: 90 Year
  Sex: Male

DRUGS (13)
  1. COUMADIN TABS 5 MG [Suspect]
     Indication: ATRIAL FIBRILLATION
     Route: 048
     Dates: start: 20081014, end: 20131014
  2. LEVOFLOXACIN [Suspect]
     Indication: BRONCHITIS
     Route: 048
     Dates: start: 20131007, end: 20131013
  3. METFORMIN [Concomitant]
  4. ESOMEPRAZOLE MAGNESIUM TRIHYDRATE [Concomitant]
  5. LEVODOPA [Concomitant]
  6. FINASTERIDE [Concomitant]
  7. BISOPROLOL HEMIFUMARATE [Concomitant]
  8. SOLOSA [Concomitant]
     Dosage: ONGOING
  9. ZYLORIC [Concomitant]
  10. LYRICA [Concomitant]
  11. TORVAST [Concomitant]
  12. STILNOX [Concomitant]
  13. LASIX [Concomitant]

REACTIONS (2)
  - Hypocoagulable state [Recovered/Resolved]
  - Drug interaction [Unknown]
